FAERS Safety Report 6938858-4 (Version None)
Quarter: 2010Q3

REPORT INFORMATION
  Report Type: 
  Country: None (occurrence: None)
  Receive Date: 20100824
  Receipt Date: 20100816
  Transmission Date: 20110219
  Serious: Yes (Other)
  Sender: FDA-Public Use
  Company Number: US-ROCHE-721758

PATIENT
  Sex: Female
  Weight: 68.8 kg

DRUGS (10)
  1. BEVACIZUMAB [Suspect]
     Route: 042
     Dates: start: 20090216, end: 20090722
  2. TAXOL [Concomitant]
     Route: 042
  3. GEMZAR [Concomitant]
     Route: 042
  4. ZOFRAN [Concomitant]
     Route: 042
  5. DECADRON [Concomitant]
     Route: 042
  6. DIPHENHYDRAMINE [Concomitant]
     Route: 042
  7. RANITIDINE [Concomitant]
     Route: 042
     Dates: start: 20090218, end: 20090722
  8. PHENERGAN [Concomitant]
     Route: 048
     Dates: start: 20100218
  9. METOPROLOL [Concomitant]
     Route: 048
     Dates: start: 20090318
  10. LASIX [Concomitant]
     Route: 048
     Dates: start: 20090708

REACTIONS (3)
  - BLOOD CREATININE INCREASED [None]
  - HYPERTENSION [None]
  - PROTEINURIA [None]
